FAERS Safety Report 19072902 (Version 1)
Quarter: 2021Q1

REPORT INFORMATION
  Report Type: Spontaneous
  Country: EG (occurrence: EG)
  Receive Date: 20210330
  Receipt Date: 20210330
  Transmission Date: 20210420
  Serious: Yes (Other)
  Sender: FDA-Public Use
  Company Number: EG-HIKMA PHARMACEUTICALS USA INC.-EG-H14001-21-01446

PATIENT
  Age: 40 Year
  Sex: Female

DRUGS (4)
  1. CYTOPLATIN [Suspect]
     Active Substance: CISPLATIN
     Indication: BREAST CANCER
     Route: 041
     Dates: start: 20210121
  2. ESOMEPRAZOLE. [Concomitant]
     Active Substance: ESOMEPRAZOLE MAGNESIUM
     Indication: PROPHYLAXIS
     Route: 048
  3. UNITAXEL [Suspect]
     Active Substance: PACLITAXEL
     Indication: BREAST CANCER
     Route: 041
     Dates: start: 20210121
  4. UNITAXEL [Suspect]
     Active Substance: PACLITAXEL
     Route: 041
     Dates: start: 20210121

REACTIONS (9)
  - Dysuria [Unknown]
  - Constipation [Unknown]
  - Blood glucose increased [Unknown]
  - Burning sensation [Unknown]
  - Pruritus [Unknown]
  - Blood creatinine decreased [Unknown]
  - Urinary incontinence [Unknown]
  - Erythema [Unknown]
  - Hypochromic anaemia [Unknown]
